FAERS Safety Report 10404040 (Version 1)
Quarter: 2014Q1

REPORT INFORMATION
  Report Type: Spontaneous
  Country: US (occurrence: None)
  Receive Date: 20131115
  Receipt Date: 20131115
  Transmission Date: 20141002
  Serious: Yes (Hospitalization)
  Sender: FDA-Public Use
  Company Number: E2B_00000600

PATIENT
  Age: 54 Year
  Sex: Female
  Weight: 96.62 kg

DRUGS (2)
  1. LISINOPRIL AND HYDROCHLOROTHIAZIDE TABLETS US 19MG/12.5MG (LISINOPRIL, HYDROCHLOROTHIAZIDE) [Suspect]
     Indication: HYPERTENSION
     Route: 048
     Dates: start: 20121231, end: 20130204
  2. METFORMIN (TABLETS) [Concomitant]

REACTIONS (2)
  - Swollen tongue [None]
  - Pharyngeal oedema [None]
